FAERS Safety Report 9032718 (Version 2)
Quarter: 2013Q1

REPORT INFORMATION
  Report Type: Spontaneous
  Country: US (occurrence: US)
  Receive Date: 20130128
  Receipt Date: 20130227
  Transmission Date: 20140127
  Serious: Yes (Hospitalization)
  Sender: FDA-Public Use
  Company Number: US-BIOGENIDEC-2012BI047595

PATIENT
  Age: 50 Year
  Sex: Female

DRUGS (4)
  1. AVONEX [Suspect]
     Indication: MULTIPLE SCLEROSIS
     Route: 030
     Dates: start: 20110608, end: 201109
  2. AVONEX [Suspect]
     Indication: MULTIPLE SCLEROSIS
     Route: 030
     Dates: start: 20120727, end: 20121003
  3. OXYCARBAZINE [Concomitant]
     Indication: TRIGEMINAL NEURALGIA
  4. BOTOX [Concomitant]
     Indication: TRIGEMINAL NEURALGIA

REACTIONS (2)
  - Liver injury [Unknown]
  - Muscular weakness [Not Recovered/Not Resolved]
